FAERS Safety Report 23087736 (Version 1)
Quarter: 2023Q4

REPORT INFORMATION
  Report Type: Spontaneous
  Country: VN (occurrence: VN)
  Receive Date: 20231020
  Receipt Date: 20231020
  Transmission Date: 20240109
  Serious: Yes (Other)
  Sender: FDA-Public Use
  Company Number: VN-002147023-NVSC2023VN212623

PATIENT

DRUGS (2)
  1. CARBOPLATIN [Suspect]
     Active Substance: CARBOPLATIN
     Indication: Oesophageal carcinoma
     Dosage: AUC EQUAL TO 2 (INFUSION ON DAYS 1, 8, 15, 22, 29)
     Route: 065
  2. PACLITAXEL [Suspect]
     Active Substance: PACLITAXEL
     Indication: Oesophageal carcinoma
     Dosage: 50 MG/M2 BODY SURFACE, CYCLIC (INFUSION ON DAY 1, 8, 15, 22, 29)
     Route: 065

REACTIONS (2)
  - Anaemia [Unknown]
  - Product use in unapproved indication [Unknown]
